FAERS Safety Report 8002455-2 (Version None)
Quarter: 2011Q4

REPORT INFORMATION
  Report Type: 
  Country: None (occurrence: None)
  Receive Date: 20111222
  Receipt Date: 20111215
  Transmission Date: 20120403
  Serious: Yes (Hospitalization)
  Sender: FDA-Public Use
  Company Number: US-ABBOTT-11P-163-0883932-00

PATIENT
  Sex: Male
  Weight: 45.4 kg

DRUGS (4)
  1. HUMIRA [Suspect]
     Indication: ANKYLOSING SPONDYLITIS
     Dates: start: 20100101
  2. HUMIRA [Suspect]
     Dates: start: 20111212
  3. POTASSIUM [Concomitant]
     Indication: PRODUCT USED FOR UNKNOWN INDICATION
     Dosage: DAILY
  4. SULFASALAZINE [Concomitant]
     Indication: COLITIS ULCERATIVE
     Dosage: DAILY

REACTIONS (12)
  - PAIN [None]
  - DRUG INEFFECTIVE [None]
  - WRONG TECHNIQUE IN DRUG USAGE PROCESS [None]
  - ENTERITIS INFECTIOUS [None]
  - APHAGIA [None]
  - THERAPEUTIC RESPONSE DELAYED [None]
  - NAUSEA [None]
  - SMALL INTESTINE ULCER [None]
  - PYREXIA [None]
  - DIARRHOEA [None]
  - POUCHITIS [None]
  - WEIGHT DECREASED [None]
